FAERS Safety Report 8589368 (Version 4)
Quarter: 2013Q4

REPORT INFORMATION
  Report Type: Report from Study
  Country: DE (occurrence: DE)
  Receive Date: 20120515
  Receipt Date: 20131101
  Transmission Date: 20140711
  Serious: Yes (Hospitalization)
  Sender: FDA-Public Use
  Company Number: DE-MSD-2012SP024494

PATIENT
  Age: 42 Year
  Sex: 0
  Weight: 84 kg

DRUGS (8)
  1. PEGINTERFERON ALFA-2B [Suspect]
     Indication: HEPATITIS C
     Dosage: 150 ?G, QW
     Route: 058
     Dates: start: 20090216
  2. PEGINTERFERON ALFA-2B [Suspect]
     Dosage: 80 ?G, QW
     Route: 058
  3. COPEGUS [Suspect]
     Indication: HEPATITIS C
     Dosage: 1200 MG, QD
     Route: 048
     Dates: start: 20090216
  4. COPEGUS [Suspect]
     Dosage: 800 MG, QD
     Route: 048
  5. METHADONE HYDROCHLORIDE [Concomitant]
     Indication: THERAPY CHANGE
     Dosage: 10 ML, QD
     Route: 048
  6. INVIRASE [Concomitant]
     Indication: HIV INFECTION
     Dosage: 100 MG, BID
     Route: 048
     Dates: start: 20070924
  7. LOPINAVIR (+) RITONAVIR [Concomitant]
     Indication: HIV INFECTION
     Dosage: DOSE: 200/50 MG
     Dates: start: 20070924
  8. FLUCONAZOLE [Concomitant]
     Indication: ANTIFUNGAL PROPHYLAXIS

REACTIONS (2)
  - Disturbance in attention [Unknown]
  - Haemoglobin decreased [Unknown]
